FAERS Safety Report 9633154 (Version 1)
Quarter: 2013Q4

REPORT INFORMATION
  Report Type: Spontaneous
  Country: US (occurrence: US)
  Receive Date: 20131020
  Receipt Date: 20131020
  Transmission Date: 20140711
  Serious: Yes (Other)
  Sender: FDA-Public Use
  Company Number: US-JNJFOC-20131011764

PATIENT
  Sex: 0

DRUGS (1)
  1. NICOTINE [Suspect]
     Indication: SMOKING CESSATION THERAPY
     Route: 048

REACTIONS (5)
  - Drug withdrawal syndrome [Unknown]
  - Exposure to toxic agent [Unknown]
  - Nicotine dependence [Unknown]
  - Adverse event [Unknown]
  - Drug ineffective [Unknown]
